FAERS Safety Report 6444869-8 (Version None)
Quarter: 2009Q4

REPORT INFORMATION
  Report Type: 
  Country: None (occurrence: None)
  Receive Date: 20091110
  Receipt Date: 20090923
  Transmission Date: 20100525
  Serious: No
  Sender: FDA-Public Use
  Company Number: 1000009045

PATIENT
  Age: 52 Year
  Sex: Female

DRUGS (14)
  1. SAVELLA [Suspect]
     Indication: FIBROMYALGIA
     Dosage: SEE IMAGE
     Route: 048
     Dates: start: 20090909, end: 20090909
  2. SAVELLA [Suspect]
     Indication: FIBROMYALGIA
     Dosage: SEE IMAGE
     Route: 048
     Dates: start: 20090910, end: 20090911
  3. SAVELLA [Suspect]
     Indication: FIBROMYALGIA
     Dosage: SEE IMAGE
     Route: 048
     Dates: start: 20090912, end: 20090915
  4. SAVELLA [Suspect]
     Indication: FIBROMYALGIA
     Dosage: SEE IMAGE
     Route: 048
     Dates: start: 20090916
  5. VASOTEC [Concomitant]
  6. HYDROCHLOROTHIAZIDE [Concomitant]
  7. SINGULAIR [Concomitant]
  8. SYNTHROID [Concomitant]
  9. AMBIEN [Concomitant]
  10. CRESTOR [Concomitant]
  11. REGLAN [Concomitant]
  12. NEXIUM [Concomitant]
  13. XANAX [Concomitant]
  14. FIORICET [Concomitant]

REACTIONS (3)
  - ABDOMINAL PAIN [None]
  - ALOPECIA [None]
  - PRURITUS [None]
